FAERS Safety Report 20150312 (Version 2)
Quarter: 2022Q1

REPORT INFORMATION
  Report Type: Report from Study
  Country: JP (occurrence: JP)
  Receive Date: 20211206
  Receipt Date: 20220218
  Transmission Date: 20220423
  Serious: Yes (Death, Hospitalization, Other)
  Sender: FDA-Public Use
  Company Number: JP-KYOWAKIRIN-2020AKK009843

PATIENT
  Age: 33 Year
  Sex: Male

DRUGS (24)
  1. ROMIPLOSTIM [Suspect]
     Active Substance: ROMIPLOSTIM
     Indication: Aplastic anaemia
     Dosage: UNK
     Route: 058
  2. ROMIPLOSTIM [Suspect]
     Active Substance: ROMIPLOSTIM
     Dosage: 10 MICROGRAM/KILOGRAM
     Route: 058
     Dates: start: 20191213, end: 20200106
  3. ROMIPLOSTIM [Suspect]
     Active Substance: ROMIPLOSTIM
     Dosage: 15 MICROGRAM/KILOGRAM
     Route: 058
     Dates: start: 20200110, end: 20200130
  4. ROMIPLOSTIM [Suspect]
     Active Substance: ROMIPLOSTIM
     Dosage: 20 MICROGRAM/KILOGRAM
     Route: 058
     Dates: start: 20200206, end: 20200604
  5. NEORAL [Concomitant]
     Active Substance: CYCLOSPORINE
     Indication: Aplastic anaemia
     Dosage: 400 MG-150MG
     Route: 048
     Dates: start: 20191213
  6. VALACYCLOVIR HYDROCHLORIDE [Concomitant]
     Active Substance: VALACYCLOVIR HYDROCHLORIDE
     Indication: Infection prophylaxis
     Dosage: 500 MG
     Route: 048
     Dates: start: 20191109, end: 20200122
  7. FLUCONAZOLE [Concomitant]
     Active Substance: FLUCONAZOLE
     Indication: Infection prophylaxis
     Dosage: 100 MG
     Route: 048
     Dates: start: 20191109
  8. LANSOPRAZOLE [Concomitant]
     Active Substance: LANSOPRAZOLE
     Indication: Gastritis prophylaxis
     Dosage: 15 MG
     Route: 048
     Dates: start: 20191113
  9. LEVOFLOXACIN HEMIHYDRATE [Concomitant]
     Active Substance: LEVOFLOXACIN
     Indication: Infection prophylaxis
     Dosage: 250 MG (PREVENTION OF INFECTION)
     Route: 048
     Dates: start: 20191028, end: 20200205
  10. LEVOFLOXACIN HEMIHYDRATE [Concomitant]
     Active Substance: LEVOFLOXACIN
     Indication: Pyrexia
     Dosage: 500 MG (FEVER)
     Route: 048
     Dates: start: 20200514, end: 20200528
  11. JADENU [Concomitant]
     Active Substance: DEFERASIROX
     Indication: Iron overload
     Dosage: 360 MG
     Route: 048
     Dates: start: 20200110, end: 20200227
  12. SOLU-CORTEF [Concomitant]
     Active Substance: HYDROCORTISONE SODIUM SUCCINATE
     Indication: Allergic transfusion reaction
     Dosage: 200 MG (ALLERGIC REACTION OF BLOOD TRANSFUSION)
     Route: 042
     Dates: start: 20200123, end: 20200123
  13. SOLU-CORTEF [Concomitant]
     Active Substance: HYDROCORTISONE SODIUM SUCCINATE
     Indication: Allergy prophylaxis
     Dosage: 1000 MG (PREVENTION OF ALLERGIC REACTION BY BLOOD TRANSFUSION)
     Route: 042
     Dates: start: 20200604, end: 20200604
  14. TAMIFLU [Concomitant]
     Active Substance: OSELTAMIVIR PHOSPHATE
     Indication: Influenza
     Dosage: 150 MG
     Route: 048
     Dates: start: 20200114, end: 20200118
  15. CARBOCYSTEINE [Concomitant]
     Active Substance: CARBOCYSTEINE
     Indication: Influenza
     Dosage: UNK
     Route: 048
     Dates: start: 20200114, end: 20200118
  16. TRANEXAMIC ACID [Concomitant]
     Active Substance: TRANEXAMIC ACID
     Indication: Influenza
     Dosage: UNK
     Route: 048
     Dates: start: 20200114, end: 20200118
  17. AMLODIPINE BESYLATE [Concomitant]
     Active Substance: AMLODIPINE BESYLATE
     Indication: Hypertension
     Dosage: 5 MG
     Route: 048
     Dates: start: 20200320
  18. CALONAL [Concomitant]
     Active Substance: ACETAMINOPHEN
     Indication: Abdominal pain
     Dosage: 1200 MG
     Route: 048
     Dates: start: 20200507, end: 20200611
  19. CALONAL [Concomitant]
     Active Substance: ACETAMINOPHEN
     Indication: Pyrexia
     Dosage: UNK
  20. CALONAL [Concomitant]
     Active Substance: ACETAMINOPHEN
  21. POTASSIUM CHLORIDE\SODIUM BICARBONATE\SODIUM SULFATE [Concomitant]
     Active Substance: POTASSIUM CHLORIDE\SODIUM BICARBONATE\SODIUM SULFATE
     Indication: Bowel preparation
     Dosage: 500 ML
     Route: 048
     Dates: start: 20200604, end: 20200604
  22. SODIUM PICOSULFATE [Concomitant]
     Active Substance: SODIUM PICOSULFATE
     Indication: Bowel preparation
     Dosage: 20 MILLILITER
     Route: 048
     Dates: start: 20200604, end: 20200604
  23. ACETAMINOPHEN [Concomitant]
     Active Substance: ACETAMINOPHEN
     Indication: Abdominal pain
     Dosage: 1000 MILLIGRAM
     Route: 042
     Dates: start: 20200528, end: 20200528
  24. ACETAMINOPHEN [Concomitant]
     Active Substance: ACETAMINOPHEN
     Indication: Pyrexia
     Dosage: UNK

REACTIONS (2)
  - Infection [Fatal]
  - Enterocolitis [Recovering/Resolving]

NARRATIVE: CASE EVENT DATE: 20200611
